FAERS Safety Report 10766771 (Version 2)
Quarter: 2015Q1

REPORT INFORMATION
  Report Type: Spontaneous
  Country: US (occurrence: US)
  Receive Date: 20150205
  Receipt Date: 20150210
  Transmission Date: 20150721
  Serious: Yes (Death)
  Sender: FDA-Public Use
  Company Number: US-BAUSCH-BL-2015-002170

PATIENT
  Age: 11 Year
  Sex: Male

DRUGS (2)
  1. XENAZINE [Suspect]
     Active Substance: TETRABENAZINE
     Indication: HUNTINGTON^S DISEASE
     Route: 048
     Dates: start: 201104
  2. XENAZINE [Suspect]
     Active Substance: TETRABENAZINE
     Dosage: ? TABLETS EVERY MORNING AND NOON AND 1 TABLET AT BEDTIME
     Route: 048
     Dates: start: 20140501

REACTIONS (2)
  - Death [Fatal]
  - Drug administration error [Unknown]

NARRATIVE: CASE EVENT DATE: 20140501
